FAERS Safety Report 9123052 (Version 2)
Quarter: 2013Q2

REPORT INFORMATION
  Report Type: Spontaneous
  Country: US (occurrence: US)
  Receive Date: 20130227
  Receipt Date: 20130416
  Transmission Date: 20140414
  Serious: No
  Sender: FDA-Public Use
  Company Number: US-PFIZER INC-2013069380

PATIENT
  Sex: Female

DRUGS (7)
  1. MOTRIN IB [Suspect]
     Indication: BACK PAIN
     Dosage: 600 MG A TOTAL, (200 MG), UNK
     Route: 048
  2. LORAZEPAM [Interacting]
     Indication: ANXIETY
     Dosage: 0.05 MG, UNK
  3. DEXILANT [Interacting]
     Indication: GASTROOESOPHAGEAL REFLUX DISEASE
     Dosage: 60 MG, UNK
  4. OSTEO BI-FLEX (OSTEO BI-FLEX) [Interacting]
     Dosage: UNK
  5. CENTRUM SILVER [Concomitant]
     Dosage: UNK
  6. GINGER ROOT [Concomitant]
     Dosage: UNK
  7. CLARITIN [Concomitant]
     Indication: HYPERSENSITIVITY
     Dosage: UNK

REACTIONS (5)
  - Drug interaction [Recovered/Resolved]
  - Incorrect dose administered [Recovered/Resolved]
  - Nausea [Recovered/Resolved]
  - Heart rate increased [Recovered/Resolved]
  - Nervousness [Recovered/Resolved]
